FAERS Safety Report 10042080 (Version 1)
Quarter: 2014Q1

REPORT INFORMATION
  Report Type: Spontaneous
  Country: US (occurrence: None)
  Receive Date: 20140325
  Receipt Date: 20140325
  Transmission Date: 20141002
  Serious: Yes (Death)
  Sender: FDA-Public Use
  Company Number: 2014P1002216

PATIENT
  Sex: 0

DRUGS (1)
  1. DIAZEPAM [Suspect]

REACTIONS (1)
  - Overdose [None]
